FAERS Safety Report 15752663 (Version 2)
Quarter: 2019Q1

REPORT INFORMATION
  Report Type: Report from Study
  Country: US (occurrence: US)
  Receive Date: 20181221
  Receipt Date: 20190118
  Transmission Date: 20190417
  Serious: Yes (Hospitalization)
  Sender: FDA-Public Use
  Company Number: US-ACTELION-A-NJ2018-183631

PATIENT
  Age: 71 Year
  Sex: Male
  Weight: 90.7 kg

DRUGS (1)
  1. VENTAVIS [Suspect]
     Active Substance: ILOPROST
     Indication: PULMONARY HYPERTENSION
     Dosage: 5 MCG, 6 TO 9 TIMES DAILY
     Route: 055
     Dates: end: 20181218

REACTIONS (4)
  - Blood pressure decreased [Unknown]
  - Hepatic enzyme increased [Recovering/Resolving]
  - Dehydration [Unknown]
  - Herpes zoster [Unknown]

NARRATIVE: CASE EVENT DATE: 201812
